FAERS Safety Report 19835904 (Version 2)
Quarter: 2022Q4

REPORT INFORMATION
  Report Type: Spontaneous
  Country: LT (occurrence: LT)
  Receive Date: 20210916
  Receipt Date: 20221021
  Transmission Date: 20230113
  Serious: Yes (Death, Life-Threatening, Hospitalization, Other)
  Sender: FDA-Public Use
  Company Number: LT-MACLEODS PHARMACEUTICALS US LTD-MAC2021032661

PATIENT

DRUGS (4)
  1. QUETIAPINE [Suspect]
     Active Substance: QUETIAPINE
     Indication: Neuropsychiatric symptoms
     Dosage: 50 MILLIGRAM, QD
     Route: 065
  2. LORAZEPAM [Suspect]
     Active Substance: LORAZEPAM
     Indication: Neuropsychiatric symptoms
     Dosage: 1 MILLIGRAM, QD (BEFORE SLEEP)
     Route: 065
  3. HYDROCHLOROTHIAZIDE\VALSARTAN [Concomitant]
     Active Substance: HYDROCHLOROTHIAZIDE\VALSARTAN
     Indication: Hypertension
     Dosage: UNK
     Route: 065
  4. METOPROLOL [Concomitant]
     Active Substance: METOPROLOL
     Indication: Hypertension
     Dosage: UNK
     Route: 065

REACTIONS (2)
  - Pulmonary embolism [Fatal]
  - Neuroleptic malignant syndrome [Recovering/Resolving]
